FAERS Safety Report 9964314 (Version 1)
Quarter: 2014Q1

REPORT INFORMATION
  Report Type: Spontaneous
  Country: US (occurrence: US)
  Receive Date: 20140305
  Receipt Date: 20140305
  Transmission Date: 20141002
  Serious: Yes (Death, Hospitalization)
  Sender: FDA-Public Use
  Company Number: US-GLAXOSMITHKLINE-A1062883A

PATIENT
  Age: 65 Year
  Sex: Female

DRUGS (2)
  1. ADVAIR [Suspect]
     Indication: CHRONIC OBSTRUCTIVE PULMONARY DISEASE
     Route: 055
     Dates: start: 2004
  2. NO CONCURRENT MEDICATION [Concomitant]

REACTIONS (3)
  - Respiratory failure [Unknown]
  - Mechanical ventilation [Unknown]
  - Chronic obstructive pulmonary disease [Fatal]
